FAERS Safety Report 8350781-X (Version None)
Quarter: 2012Q2

REPORT INFORMATION
  Report Type: 
  Country: None (occurrence: None)
  Receive Date: 20120510
  Receipt Date: 20120502
  Transmission Date: 20120825
  Serious: Yes (Hospitalization)
  Sender: FDA-Public Use
  Company Number: JP-GLAXOSMITHKLINE-B0798860A

PATIENT
  Sex: Male

DRUGS (1)
  1. RELENZA [Suspect]
     Indication: INFLUENZA
     Route: 055
     Dates: start: 20120419, end: 20120423

REACTIONS (22)
  - HEADACHE [None]
  - FEELING COLD [None]
  - FEELING ABNORMAL [None]
  - DEPRESSED LEVEL OF CONSCIOUSNESS [None]
  - C-REACTIVE PROTEIN INCREASED [None]
  - DRUG ERUPTION [None]
  - NECK PAIN [None]
  - BLOOD LACTATE DEHYDROGENASE INCREASED [None]
  - DIARRHOEA [None]
  - DYSGEUSIA [None]
  - BACTERIAL INFECTION [None]
  - PROTEIN URINE PRESENT [None]
  - DECREASED APPETITE [None]
  - PYREXIA [None]
  - WHITE BLOOD CELL COUNT INCREASED [None]
  - PRURITUS [None]
  - ERYTHEMA [None]
  - GAMMA-GLUTAMYLTRANSFERASE INCREASED [None]
  - SKIN DISCOLOURATION [None]
  - RASH [None]
  - VOMITING [None]
  - ARTHRALGIA [None]
